FAERS Safety Report 8448805-4 (Version None)
Quarter: 2012Q2

REPORT INFORMATION
  Report Type: 
  Country: None (occurrence: None)
  Receive Date: 20120613
  Receipt Date: 20120601
  Transmission Date: 20120825
  Serious: Yes (Other)
  Sender: FDA-Public Use
  Company Number: AUR-APL-2012-02484

PATIENT
  Age: 68 Year
  Sex: Female

DRUGS (6)
  1. ALENDRONIC ACID (ALENDRONIC ACID) [Concomitant]
  2. CALCICHEW D3 (LEKOVIT CA) [Concomitant]
  3. SIMVASTATIN [Concomitant]
  4. MEMANTINE HCL [Suspect]
     Indication: PSYCHOTIC DISORDER
     Dosage: 0.5 MG, ORAL
     Route: 048
     Dates: start: 20120403, end: 20120411
  5. ASPIRIN [Concomitant]
  6. RISPERIDONE [Suspect]
     Indication: DEMENTIA ALZHEIMER'S TYPE
     Dosage: 10 MG, ORAL
     Route: 048
     Dates: start: 20120106, end: 20120418

REACTIONS (2)
  - ORTHOSTATIC HYPOTENSION [None]
  - DISORIENTATION [None]
